FAERS Safety Report 14996312 (Version 1)
Quarter: 2018Q2

REPORT INFORMATION
  Report Type: Spontaneous
  Country: US (occurrence: US)
  Receive Date: 20180611
  Receipt Date: 20180611
  Transmission Date: 20180711
  Serious: Yes (Hospitalization, Other)
  Sender: FDA-Public Use
  Company Number: US-ABBVIE-18S-163-2379475-00

PATIENT
  Age: 23 Year
  Sex: Male

DRUGS (5)
  1. BANZEL [Suspect]
     Active Substance: RUFINAMIDE
     Indication: PRODUCT USED FOR UNKNOWN INDICATION
     Route: 065
  2. TEGRETOL [Suspect]
     Active Substance: CARBAMAZEPINE
     Indication: AFFECTIVE DISORDER
     Route: 065
  3. VIMPAT [Suspect]
     Active Substance: LACOSAMIDE
     Indication: PRODUCT USED FOR UNKNOWN INDICATION
     Route: 065
     Dates: start: 2014
  4. DEPAKOTE [Suspect]
     Active Substance: DIVALPROEX SODIUM
     Indication: AFFECTIVE DISORDER
     Route: 065
  5. KEPPRA [Suspect]
     Active Substance: LEVETIRACETAM
     Indication: PRODUCT USED FOR UNKNOWN INDICATION
     Route: 065

REACTIONS (19)
  - Disorganised speech [Unknown]
  - Autoscopy [Unknown]
  - Dizziness [Unknown]
  - Seizure [Unknown]
  - Generalised tonic-clonic seizure [Unknown]
  - Feeling abnormal [Unknown]
  - Mydriasis [Recovered/Resolved]
  - Balance disorder [Recovering/Resolving]
  - Malaise [Unknown]
  - Confusional state [Unknown]
  - Dysarthria [Unknown]
  - Vertigo [Unknown]
  - Postictal state [Unknown]
  - Tremor [Unknown]
  - Aggression [Unknown]
  - Vomiting [Recovering/Resolving]
  - Encephalopathy [Unknown]
  - Memory impairment [Recovering/Resolving]
  - Nausea [Recovering/Resolving]

NARRATIVE: CASE EVENT DATE: 201202
